FAERS Safety Report 4413588-1 (Version None)
Quarter: 2004Q3

REPORT INFORMATION
  Report Type: 
  Country: None (occurrence: None)
  Receive Date: 20040728
  Receipt Date: 20040211
  Transmission Date: 20050211
  Serious: Yes (Hospitalization)
  Sender: FDA-Public Use
  Company Number: 2004224944DE

PATIENT
  Age: 54 Year
  Sex: Female

DRUGS (5)
  1. IDARUBICIN HCL [Suspect]
     Indication: MULTIPLE MYELOMA
     Dates: start: 20031112, end: 20031115
  2. CYCLOPHOSPHAMIDE [Suspect]
     Indication: MULTIPLE MYELOMA
     Dates: start: 20031112, end: 20031115
  3. COMPARATOR - DEXAMETHASONE (DEXAMETHASONE) TABLET [Suspect]
     Indication: MULTIPLE MYELOMA
     Dosage: 40 MG
     Dates: start: 20031112, end: 20031115
  4. COMPARATOR - DEXAMETHASONE (DEXAMETHASONE) TABLET [Suspect]
     Indication: MULTIPLE MYELOMA
     Dosage: 40 MG
     Dates: start: 20031126, end: 20031129
  5. COMPARATOR - THALIDOMIDE (THALIDOMIDE) CAPSULE [Suspect]
     Indication: MULTIPLE MYELOMA
     Dosage: 100 MG
     Dates: start: 20031112

REACTIONS (4)
  - APLASIA [None]
  - CLOSTRIDIUM COLITIS [None]
  - CLOSTRIDIUM DIFFICILE SEPSIS [None]
  - RENAL FAILURE [None]
